FAERS Safety Report 8203311 (Version 3)
Quarter: 2012Q4

REPORT INFORMATION
  Report Type: 
  Country: NO (occurrence: NO)
  Receive Date: 20111027
  Receipt Date: 20121226
  Transmission Date: 20130627
  Serious: Yes (Life-Threatening)
  Sender: FDA-Public Use
  Company Number: NO-PFIZER INC-2011258491

PATIENT
  Age: 77 Year
  Sex: Female

DRUGS (4)
  1. DALACIN [Suspect]
     Indication: PROPHYLACTIC ANTIBIOTIC THERAPY
     Dosage: 600mg, UNK
     Route: 042
     Dates: start: 20111010, end: 20111010
  2. MARCAIN SPINAL TUNG [Concomitant]
     Indication: ANAESTHESIA PROCEDURE
     Dosage: UNK
     Route: 024
     Dates: start: 20111010
  3. FENTANYL [Concomitant]
     Indication: ANAESTHESIA PROCEDURE
     Dosage: 50 mikrogram: refract doses
     Route: 051
     Dates: start: 20111010
  4. MIDAZOLAM [Concomitant]
     Indication: ANAESTHESIA PROCEDURE
     Dosage: UNK
     Route: 051
     Dates: start: 20111010

REACTIONS (3)
  - Cardiac arrest [Recovered/Resolved with Sequelae]
  - Anaphylactic shock [Recovered/Resolved with Sequelae]
  - Urticaria [Recovered/Resolved]
